FAERS Safety Report 25331555 (Version 1)
Quarter: 2025Q2

REPORT INFORMATION
  Report Type: Spontaneous
  Country: CN (occurrence: CN)
  Receive Date: 20250519
  Receipt Date: 20250519
  Transmission Date: 20250717
  Serious: Yes (Hospitalization)
  Sender: NOVARTIS
  Company Number: CN-002147023-NVSC2025CN079358

PATIENT
  Age: 67 Year
  Sex: Female

DRUGS (1)
  1. CARBAMAZEPINE [Suspect]
     Active Substance: CARBAMAZEPINE
     Indication: Neuralgia
     Route: 048

REACTIONS (4)
  - Pruritus [Unknown]
  - Skin exfoliation [Unknown]
  - Dermatitis exfoliative generalised [Recovering/Resolving]
  - Drug ineffective [Unknown]
